FAERS Safety Report 7229752-2 (Version None)
Quarter: 2011Q1

REPORT INFORMATION
  Report Type: 
  Country: None (occurrence: None)
  Receive Date: 20110117
  Receipt Date: 20110112
  Transmission Date: 20110831
  Serious: Yes (Hospitalization, Other)
  Sender: FDA-Public Use
  Company Number: US-ABBOTT-11P-163-0696858-00

PATIENT
  Sex: Female
  Weight: 70.37 kg

DRUGS (4)
  1. MORPHINE [Suspect]
     Indication: BACK PAIN
     Dates: start: 20101001, end: 20101001
  2. TYLENOL W/ CODEINE NO. 3 [Suspect]
     Indication: BACK PAIN
     Dates: start: 20101101, end: 20101101
  3. FENTANYL [Concomitant]
     Indication: BACK PAIN
     Dates: start: 20101001, end: 20101101
  4. HUMIRA [Suspect]
     Indication: RHEUMATOID ARTHRITIS
     Route: 058
     Dates: end: 20101010

REACTIONS (11)
  - RHEUMATOID ARTHRITIS [None]
  - IMPAIRED DRIVING ABILITY [None]
  - URTICARIA [None]
  - GASTRIC DISORDER [None]
  - SUDDEN ONSET OF SLEEP [None]
  - BACK PAIN [None]
  - JOINT STIFFNESS [None]
  - THORACIC VERTEBRAL FRACTURE [None]
  - WEIGHT DECREASED [None]
  - ROAD TRAFFIC ACCIDENT [None]
  - ABASIA [None]
